FAERS Safety Report 7100075-5 (Version None)
Quarter: 2010Q4

REPORT INFORMATION
  Report Type: 
  Country: None (occurrence: None)
  Receive Date: 20101112
  Receipt Date: 20090924
  Transmission Date: 20110411
  Serious: No
  Sender: FDA-Public Use
  Company Number: A0808853A

PATIENT
  Sex: Female

DRUGS (11)
  1. CARVEDILOL [Suspect]
     Indication: HYPERTENSION
     Dosage: 25MG TWICE PER DAY
     Route: 048
     Dates: start: 20090301
  2. ALTACE [Concomitant]
  3. COUMADIN [Concomitant]
  4. VYTORIN [Concomitant]
  5. ACTOS [Concomitant]
  6. PREVACID [Concomitant]
  7. NITROFURANTOIN MACROCRYSTAL [Concomitant]
  8. FISH OIL [Concomitant]
  9. CITRACAL [Concomitant]
  10. GLUCOSAMINE/CHONDROITIN [Concomitant]
  11. MSM [Concomitant]

REACTIONS (1)
  - MALAISE [None]
